FAERS Safety Report 7186843-2 (Version None)
Quarter: 2010Q4

REPORT INFORMATION
  Report Type: 
  Country: None (occurrence: None)
  Receive Date: 20101222
  Receipt Date: 20101215
  Transmission Date: 20110411
  Serious: Yes (Hospitalization)
  Sender: FDA-Public Use
  Company Number: B0685901A

PATIENT
  Age: 47 Year
  Sex: Male

DRUGS (19)
  1. MARAVIROC [Suspect]
     Indication: HIV INFECTION
     Dosage: 150MG TWICE PER DAY
     Route: 048
     Dates: start: 20060313, end: 20070410
  2. PREZISTA [Suspect]
     Dosage: 600MG TWICE PER DAY
     Route: 048
     Dates: start: 20080301
  3. INTELENCE [Suspect]
     Dosage: 100MG TWICE PER DAY
     Route: 048
     Dates: start: 20080301
  4. ISENTRESS [Suspect]
     Dosage: 400MG TWICE PER DAY
     Route: 048
     Dates: start: 20080301
  5. VIREAD [Suspect]
     Dosage: 300MG PER DAY
     Route: 048
     Dates: start: 20041001, end: 20080301
  6. INVIRASE [Suspect]
     Dosage: 1000MG TWICE PER DAY
     Route: 048
     Dates: start: 20051115, end: 20080301
  7. KALETRA [Suspect]
     Route: 048
     Dates: start: 20051122, end: 20080301
  8. RITONAVIR [Suspect]
     Dosage: 100MG TWICE PER DAY
     Route: 048
     Dates: start: 20080301
  9. ETHAMBUTOL HYDROCHLORIDE [Concomitant]
     Dates: start: 19991001, end: 20080501
  10. ZITHROMAX [Concomitant]
     Dates: start: 19991001, end: 20080501
  11. DAPSONE [Concomitant]
     Dates: start: 20000901, end: 20080501
  12. MEPRON [Concomitant]
     Dates: start: 20040501, end: 20080501
  13. ANDROGEL [Concomitant]
     Dates: start: 20060615, end: 20080501
  14. PROCRIT [Concomitant]
     Dates: start: 20061101, end: 20070306
  15. FLAGYL [Concomitant]
     Dates: start: 20070203, end: 20070301
  16. COZAAR [Concomitant]
     Dates: start: 20080301
  17. COREG [Concomitant]
     Dates: start: 20080301
  18. ACETYLSALICYLIC ACID [Concomitant]
     Dates: start: 20080301
  19. NITROGLYCERIN [Concomitant]
     Dates: start: 20080301

REACTIONS (1)
  - MYOCARDIAL INFARCTION [None]
